FAERS Safety Report 15546754 (Version 2)
Quarter: 2025Q3

REPORT INFORMATION
  Report Type: Spontaneous
  Country: US (occurrence: US)
  Receive Date: 20181024
  Receipt Date: 20250718
  Transmission Date: 20251020
  Serious: Yes (Other)
  Sender: AUROBINDO
  Company Number: US-MYLANLABS-2018M1076704

PATIENT
  Age: 58 Year
  Sex: Male

DRUGS (11)
  1. CLOBETASOL PROPIONATE [Suspect]
     Active Substance: CLOBETASOL PROPIONATE
     Indication: Linear IgA disease
     Route: 061
  2. HYDROXYZINE [Suspect]
     Active Substance: HYDROXYZINE HYDROCHLORIDE
     Indication: Linear IgA disease
     Route: 065
  3. DOXYCYCLINE [Suspect]
     Active Substance: DOXYCYCLINE
     Indication: Linear IgA disease
     Dosage: 100 MILLIGRAM, TWO TIMES A DAY
     Route: 065
  4. TRIAMCINOLONE [Suspect]
     Active Substance: TRIAMCINOLONE
     Indication: Linear IgA disease
     Route: 065
  5. DAPSONE [Suspect]
     Active Substance: DAPSONE
     Indication: Linear IgA disease
     Route: 065
  6. DAPSONE [Suspect]
     Active Substance: DAPSONE
     Dosage: 150 MILLIGRAM, ONCE A DAY
     Route: 065
  7. MESALAMINE [Suspect]
     Active Substance: MESALAMINE
     Indication: Proctitis ulcerative
     Route: 065
  8. NIACINAMIDE [Suspect]
     Active Substance: NIACINAMIDE
     Indication: Linear IgA disease
     Dosage: 500 MILLIGRAM, TWO TIMES A DAY
     Route: 065
  9. METHOTREXATE [Concomitant]
     Active Substance: METHOTREXATE
     Indication: Linear IgA disease
     Dosage: 22.5 MILLIGRAM, EVERY WEEK
     Route: 065
  10. PREDNISONE [Concomitant]
     Active Substance: PREDNISONE
     Indication: Linear IgA disease
     Route: 065
  11. METHYLPREDNISOLONE [Concomitant]
     Active Substance: METHYLPREDNISOLONE
     Indication: Linear IgA disease
     Route: 042

REACTIONS (3)
  - Treatment failure [Unknown]
  - Dermatitis acneiform [Unknown]
  - Fatigue [Unknown]
